FAERS Safety Report 9397042 (Version 1)
Quarter: 2013Q3

REPORT INFORMATION
  Report Type: Spontaneous
  Country: US (occurrence: US)
  Receive Date: 20130712
  Receipt Date: 20130712
  Transmission Date: 20140515
  Serious: No
  Sender: FDA-Public Use
  Company Number: US-PFIZER INC-2013203724

PATIENT
  Sex: Female

DRUGS (2)
  1. ADVIL [Suspect]
     Dosage: 2 TABLETS, EVERY SIX HOURS
     Route: 048
     Dates: start: 201307
  2. TYLENOL PM [Concomitant]
     Dosage: 2 TABLETS, EVERY SIX HOURS
     Route: 048
     Dates: start: 201307

REACTIONS (2)
  - Extra dose administered [Unknown]
  - Nausea [Unknown]
